FAERS Safety Report 13614591 (Version 2)
Quarter: 2017Q2

REPORT INFORMATION
  Report Type: Report from Study
  Country: EC (occurrence: EC)
  Receive Date: 20170606
  Receipt Date: 20170616
  Transmission Date: 20170830
  Serious: Yes (Other)
  Sender: FDA-Public Use
  Company Number: EC-ROCHE-1942609

PATIENT
  Sex: Female

DRUGS (1)
  1. RITUXIMAB [Suspect]
     Active Substance: RITUXIMAB
     Indication: RHEUMATOID ARTHRITIS
     Route: 042

REACTIONS (7)
  - Headache [Unknown]
  - Infection [Unknown]
  - Blood creatinine increased [Unknown]
  - Hypertension [Unknown]
  - Urinary tract infection [Unknown]
  - Acute kidney injury [Unknown]
  - Pneumonia [Unknown]
